FAERS Safety Report 6961139-X (Version None)
Quarter: 2010Q3

REPORT INFORMATION
  Report Type: 
  Country: None (occurrence: None)
  Receive Date: 20100901
  Receipt Date: 20100825
  Transmission Date: 20110219
  Serious: Yes (Death, Life-Threatening, Hospitalization)
  Sender: FDA-Public Use
  Company Number: UG-ABBOTT-10P-167-0651650-00

PATIENT
  Sex: Male

DRUGS (11)
  1. ALUVIA TABLETS [Suspect]
     Indication: HIV INFECTION
     Route: 048
     Dates: start: 20100604, end: 20100610
  2. FLUCONAZOLE [Concomitant]
     Indication: PRODUCT USED FOR UNKNOWN INDICATION
     Dates: start: 20100519
  3. COMBIVIR [Concomitant]
     Indication: PRODUCT USED FOR UNKNOWN INDICATION
     Dates: start: 20090504, end: 20100414
  4. STAVUDINE [Concomitant]
     Indication: PRODUCT USED FOR UNKNOWN INDICATION
     Dates: start: 20060608, end: 20090504
  5. METRONIDAZOLE [Concomitant]
     Indication: PRODUCT USED FOR UNKNOWN INDICATION
     Dates: start: 20100519, end: 20100525
  6. MULTI-VITAMINS [Concomitant]
     Indication: PRODUCT USED FOR UNKNOWN INDICATION
     Dates: start: 20100519
  7. IMODIUM [Concomitant]
     Indication: PRODUCT USED FOR UNKNOWN INDICATION
     Dates: start: 20100519, end: 20100525
  8. TRUVADA/LAMIVUDINE [Concomitant]
     Indication: PRODUCT USED FOR UNKNOWN INDICATION
     Dates: start: 20100414, end: 20100604
  9. NEVIRAPINE [Concomitant]
     Indication: PRODUCT USED FOR UNKNOWN INDICATION
     Dates: start: 20060608, end: 20100604
  10. RALTEGRAVIR [Concomitant]
     Indication: PRODUCT USED FOR UNKNOWN INDICATION
     Dates: start: 20100604, end: 20100610
  11. COTRIM [Concomitant]
     Indication: PRODUCT USED FOR UNKNOWN INDICATION
     Dates: start: 20060601, end: 20100610

REACTIONS (4)
  - ACUTE RESPIRATORY FAILURE [None]
  - ALTERED STATE OF CONSCIOUSNESS [None]
  - PNEUMONIA ASPIRATION [None]
  - URINARY RETENTION [None]
